FAERS Safety Report 21475194 (Version 1)
Quarter: 2022Q4

REPORT INFORMATION
  Report Type: Spontaneous
  Country: SK (occurrence: SK)
  Receive Date: 20221019
  Receipt Date: 20221019
  Transmission Date: 20230113
  Serious: Yes (Hospitalization, Other)
  Sender: FDA-Public Use
  Company Number: SK-BoehringerIngelheim-2022-BI-197853

PATIENT
  Age: 52 Year
  Sex: Male
  Weight: 160 kg

DRUGS (5)
  1. JARDIANCE [Suspect]
     Active Substance: EMPAGLIFLOZIN
     Indication: Type 2 diabetes mellitus
     Route: 048
     Dates: start: 201709, end: 201805
  2. JARDIANCE [Suspect]
     Active Substance: EMPAGLIFLOZIN
     Route: 048
     Dates: start: 201805, end: 202210
  3. METFORMIN [Concomitant]
     Active Substance: METFORMIN HYDROCHLORIDE
     Indication: Product used for unknown indication
  4. INSULIN NOS [Concomitant]
     Active Substance: INSULIN NOS
     Indication: Product used for unknown indication
     Dates: start: 2016
  5. INSULIN NOS [Concomitant]
     Active Substance: INSULIN NOS
     Dates: start: 2015, end: 2016

REACTIONS (4)
  - Postoperative wound infection [Recovered/Resolved]
  - Fournier^s gangrene [Recovered/Resolved]
  - Circumcision [Recovered/Resolved]
  - Scrotal operation [Not Recovered/Not Resolved]

NARRATIVE: CASE EVENT DATE: 20220801
